FAERS Safety Report 8258193-4 (Version None)
Quarter: 2012Q2

REPORT INFORMATION
  Report Type: 
  Country: None (occurrence: None)
  Receive Date: 20120404
  Receipt Date: 20120330
  Transmission Date: 20120825
  Serious: Yes (Death)
  Sender: FDA-Public Use
  Company Number: PHEH2012US007118

PATIENT
  Sex: Female

DRUGS (13)
  1. CHOLESTYRAMINE [Concomitant]
  2. NEUPOGEN [Concomitant]
  3. EXJADE [Suspect]
     Indication: IRON OVERLOAD
     Dosage: 4 DF, QD
     Route: 048
  4. OMEPRAZOLE [Concomitant]
  5. DIGOXIN [Concomitant]
  6. DILTIAZEM HCL [Concomitant]
  7. LASIX [Concomitant]
  8. FOLIC ACID [Concomitant]
  9. POTASSIUM [Concomitant]
  10. LEVOTHYROXINE SODIUM [Concomitant]
  11. METOPROLOL TARTRATE [Concomitant]
  12. PLAVIX [Concomitant]
  13. ARANESP [Concomitant]

REACTIONS (1)
  - DEATH [None]
